FAERS Safety Report 14946980 (Version 1)
Quarter: 2018Q2

REPORT INFORMATION
  Report Type: Spontaneous
  Country: US (occurrence: US)
  Receive Date: 20180508
  Receipt Date: 20180508
  Transmission Date: 20180711
  Serious: Yes (Disabling)
  Sender: FDA-Public Use
  Company Number: None

PATIENT
  Age: 33 Year
  Sex: Female
  Weight: 66.6 kg

DRUGS (10)
  1. LISINOPRIL. [Concomitant]
     Active Substance: LISINOPRIL
  2. NOVOLOG [Suspect]
     Active Substance: INSULIN ASPART
     Indication: TYPE 1 DIABETES MELLITUS
     Dosage: ?          OTHER FREQUENCY:INFUSED BY PUMP;?
     Route: 058
     Dates: start: 20180209, end: 20180302
  3. ONETOUCH VERIO [Concomitant]
  4. HUMALOG [Concomitant]
     Active Substance: INSULIN LISPRO
  5. DEXCOM G5 [Concomitant]
  6. MULTIVITAMIN [Concomitant]
     Active Substance: VITAMINS
  7. TANDEM T:SLIM [Concomitant]
  8. NATURE-THROID [Concomitant]
     Active Substance: THYROID, PORCINE
  9. D3 2000 [Concomitant]
  10. MAGNESIUM [Concomitant]
     Active Substance: MAGNESIUM

REACTIONS (6)
  - Drug dose omission by device [None]
  - Urticaria [None]
  - Rash pruritic [None]
  - Product substitution issue [None]
  - Blood glucose increased [None]
  - Medical device site irritation [None]
